FAERS Safety Report 22381651 (Version 2)
Quarter: 2023Q2

REPORT INFORMATION
  Report Type: Spontaneous
  Country: SK (occurrence: SK)
  Receive Date: 20230530
  Receipt Date: 20230626
  Transmission Date: 20230721
  Serious: Yes (Life-Threatening, Hospitalization, Other)
  Sender: FDA-Public Use
  Company Number: SK-EMA-DD-20230517-225467-111157

PATIENT
  Age: 76 Year
  Sex: Male
  Weight: 80 kg

DRUGS (15)
  1. FUROSEMIDE [Suspect]
     Active Substance: FUROSEMIDE
     Indication: Cardiac failure chronic
     Dosage: 125 MG, QD
     Route: 065
  2. METOPROLOL [Suspect]
     Active Substance: METOPROLOL
     Indication: Type 2 diabetes mellitus
     Dosage: 150 MG, QD
     Route: 065
  3. EPLERENONE [Suspect]
     Active Substance: EPLERENONE
     Indication: Cardiac failure chronic
     Dosage: 50 MG, QD
     Route: 065
  4. DABIGATRAN [Suspect]
     Active Substance: DABIGATRAN
     Indication: Cardiac failure chronic
     Dosage: 300 MG, QD
     Route: 065
  5. ATORVASTATIN [Suspect]
     Active Substance: ATORVASTATIN
     Indication: Cardiac failure chronic
     Dosage: 80 MG, QD
     Route: 065
  6. VITAMINS NOS [Suspect]
     Active Substance: VITAMINS
     Indication: Diabetic neuropathy
     Dosage: UNK
     Route: 065
  7. VITAMINS NOS [Suspect]
     Active Substance: VITAMINS
     Indication: Vitamin supplementation
  8. PREGABALIN [Interacting]
     Active Substance: PREGABALIN
     Indication: Diabetic neuropathy
     Dosage: 75 MG, QD
     Route: 065
  9. PREGABALIN [Interacting]
     Active Substance: PREGABALIN
     Dosage: 75 MG, QD
     Route: 065
  10. PREGABALIN [Interacting]
     Active Substance: PREGABALIN
     Dosage: 150 MG, QD
     Route: 065
  11. PREGABALIN [Interacting]
     Active Substance: PREGABALIN
     Dosage: 225 MG, QD
     Route: 065
  12. GLIMEPIRIDE [Interacting]
     Active Substance: GLIMEPIRIDE
     Indication: Type 2 diabetes mellitus
     Dosage: 6 MG, QD
     Route: 065
  13. THIOCTIC ACID [Suspect]
     Active Substance: THIOCTIC ACID
     Indication: Product used for unknown indication
     Dosage: UNK
     Route: 065
  14. AMIODARONE HYDROCHLORIDE [Interacting]
     Active Substance: AMIODARONE HYDROCHLORIDE
     Indication: Cardiac failure chronic
     Dosage: 200 MG, QD
     Route: 065
  15. INSULIN GLARGINE [Suspect]
     Active Substance: INSULIN GLARGINE
     Indication: Type 2 diabetes mellitus
     Dosage: 16 IU, QD
     Route: 065

REACTIONS (5)
  - Hypoglycaemia [Recovering/Resolving]
  - Drug interaction [Recovering/Resolving]
  - Hyperthyroidism [Recovered/Resolved]
  - Diabetic neuropathy [Recovering/Resolving]
  - Hypotension [Recovering/Resolving]
